FAERS Safety Report 25203085 (Version 1)
Quarter: 2025Q2

REPORT INFORMATION
  Report Type: Spontaneous
  Country: GB (occurrence: GB)
  Receive Date: 20250416
  Receipt Date: 20250416
  Transmission Date: 20250717
  Serious: Yes (Other)
  Sender: ALEXION PHARMACEUTICALS
  Company Number: GB-AstraZeneca-CH-00711425A

PATIENT

DRUGS (5)
  1. TEZSPIRE [Suspect]
     Active Substance: TEZEPELUMAB-EKKO
     Route: 065
  2. TEZSPIRE [Suspect]
     Active Substance: TEZEPELUMAB-EKKO
  3. TEZSPIRE [Suspect]
     Active Substance: TEZEPELUMAB-EKKO
  4. FASENRA [Suspect]
     Active Substance: BENRALIZUMAB
     Route: 065
  5. ASTRAZENECA COVID-19 VACCINE [Suspect]
     Active Substance: AZD-1222
     Route: 065

REACTIONS (10)
  - Injection site rash [Unknown]
  - Chronic sinusitis [Unknown]
  - Blood blister [Unknown]
  - Asthma [Unknown]
  - Skin laceration [Unknown]
  - Wound [Unknown]
  - Haemorrhage [Unknown]
  - Contusion [Unknown]
  - Arthralgia [Unknown]
  - Skin discolouration [Unknown]
